FAERS Safety Report 7668579-4 (Version None)
Quarter: 2011Q3

REPORT INFORMATION
  Report Type: 
  Country: None (occurrence: None)
  Receive Date: 20110808
  Receipt Date: 20110808
  Transmission Date: 20111222
  Serious: Yes (Life-Threatening)
  Sender: FDA-Public Use
  Company Number: None

PATIENT
  Age: 36 Year
  Sex: Male
  Weight: 68 kg

DRUGS (1)
  1. QUETIAPINE [Suspect]
     Indication: SCHIZOPHRENIA
     Dosage: 4
     Route: 048
     Dates: start: 20101004, end: 20101028

REACTIONS (4)
  - FEELING ABNORMAL [None]
  - DISCOMFORT [None]
  - ASTHENIA [None]
  - UNEVALUABLE EVENT [None]
